FAERS Safety Report 24056362 (Version 2)
Quarter: 2025Q2

REPORT INFORMATION
  Report Type: Spontaneous
  Country: US (occurrence: US)
  Receive Date: 20240705
  Receipt Date: 20250626
  Transmission Date: 20250716
  Serious: No
  Sender: EISAI
  Company Number: US-Eisai-EC-2024-168927

PATIENT
  Age: 61 Year
  Sex: Female

DRUGS (4)
  1. LEQEMBI [Suspect]
     Active Substance: LECANEMAB-IRMB
     Indication: Dementia Alzheimer^s type
     Dates: start: 202404, end: 20250605
  2. FISH OIL [Concomitant]
     Active Substance: FISH OIL
  3. DONEPEZIL [Concomitant]
     Active Substance: DONEPEZIL
  4. BABAY ASPIRIN [Concomitant]

REACTIONS (2)
  - Depressed mood [Recovered/Resolved]
  - Therapeutic product effect decreased [Unknown]

NARRATIVE: CASE EVENT DATE: 20240601
